FAERS Safety Report 23704757 (Version 2)
Quarter: 2024Q2

REPORT INFORMATION
  Report Type: Spontaneous
  Country: IT (occurrence: IT)
  Receive Date: 20240404
  Receipt Date: 20240419
  Transmission Date: 20240716
  Serious: Yes (Hospitalization, Other)
  Sender: FDA-Public Use
  Company Number: IT-ABBVIE-5703614

PATIENT
  Age: 8 Month
  Sex: Female

DRUGS (1)
  1. BRIMONIDINE [Suspect]
     Active Substance: BRIMONIDINE TARTRATE
     Indication: Product used for unknown indication
     Route: 047

REACTIONS (3)
  - Encephalopathy [Unknown]
  - Accidental overdose [Unknown]
  - Prescription drug used without a prescription [Unknown]
